FAERS Safety Report 5091758-X (Version None)
Quarter: 2006Q3

REPORT INFORMATION
  Report Type: 
  Country: None (occurrence: None)
  Receive Date: 20060829
  Receipt Date: 20060505
  Transmission Date: 20061208
  Serious: Yes (Hospitalization)
  Sender: FDA-Public Use
  Company Number: US-BRISTOL-MYERS SQUIBB COMPANY-13370887

PATIENT
  Age: 61 Year
  Sex: Male

DRUGS (5)
  1. ERBITUX [Suspect]
     Indication: COLORECTAL CANCER
     Route: 042
     Dates: start: 20060417, end: 20060417
  2. DIPHENHYDRAMINE [Concomitant]
  3. ALOXI [Concomitant]
  4. DECADRON [Concomitant]
  5. TYLENOL [Concomitant]

REACTIONS (1)
  - HYPERSENSITIVITY [None]
